FAERS Safety Report 7334871-6 (Version None)
Quarter: 2011Q1

REPORT INFORMATION
  Report Type: 
  Country: None (occurrence: None)
  Receive Date: 20110307
  Receipt Date: 20110223
  Transmission Date: 20110831
  Serious: Yes (Death, Hospitalization, Other)
  Sender: FDA-Public Use
  Company Number: JP-SANOFI-AVENTIS-2010SA069252

PATIENT
  Age: 76 Year
  Sex: Male
  Weight: 56 kg

DRUGS (13)
  1. ALOSITOL [Concomitant]
     Route: 048
     Dates: start: 20040908, end: 20101111
  2. GASTER [Concomitant]
     Indication: GASTRIC ULCER
     Route: 048
     Dates: start: 20100716, end: 20101103
  3. PLAVIX [Suspect]
     Indication: STENT PLACEMENT
     Route: 048
     Dates: start: 20100921, end: 20101111
  4. LAC B [Concomitant]
     Route: 048
     Dates: start: 20040908, end: 20101111
  5. MYSLEE [Concomitant]
     Indication: INSOMNIA
     Route: 048
     Dates: start: 20100112, end: 20101111
  6. PARIET [Suspect]
     Indication: GASTRIC ULCER
     Route: 048
     Dates: start: 20101104, end: 20101111
  7. LASIX [Concomitant]
     Indication: CARDIAC FAILURE
     Route: 048
     Dates: start: 20040908, end: 20101111
  8. ULGUT [Concomitant]
     Indication: GASTRIC ULCER
     Route: 048
     Dates: start: 20040908, end: 20101111
  9. ASPIRIN [Concomitant]
     Indication: ANGINA PECTORIS
     Route: 048
     Dates: start: 20100716, end: 20101111
  10. FLIVAS [Concomitant]
     Route: 048
     Dates: start: 20100525, end: 20101111
  11. BEZATOL - SLOW RELEASE [Concomitant]
     Route: 048
     Dates: start: 20040908, end: 20101111
  12. LANDEL [Concomitant]
     Indication: HYPERTENSION
     Route: 048
     Dates: start: 20060615, end: 20101111
  13. ITOROL [Concomitant]
     Indication: ANGINA PECTORIS
     Route: 048
     Dates: start: 20100716, end: 20101111

REACTIONS (9)
  - RESPIRATORY FAILURE [None]
  - INTERSTITIAL LUNG DISEASE [None]
  - DYSPNOEA EXERTIONAL [None]
  - LIVER DISORDER [None]
  - COUGH [None]
  - RENAL FAILURE [None]
  - HAEMORRHAGE INTRACRANIAL [None]
  - PNEUMONIA BACTERIAL [None]
  - CARDIAC FAILURE [None]
